FAERS Safety Report 8119324-X (Version None)
Quarter: 2012Q1

REPORT INFORMATION
  Report Type: 
  Country: None (occurrence: None)
  Receive Date: 20120207
  Receipt Date: 20120131
  Transmission Date: 20120608
  Serious: Yes (Other)
  Sender: FDA-Public Use
  Company Number: US-US-EMD SERONO, INC.-7100810

PATIENT
  Sex: Female

DRUGS (2)
  1. REBIF [Suspect]
     Indication: MULTIPLE SCLEROSIS
     Route: 058
     Dates: start: 20100701, end: 20100901
  2. REBIF [Suspect]
     Route: 058
     Dates: start: 20101201, end: 20110601

REACTIONS (2)
  - FOETAL EXPOSURE DURING PREGNANCY [None]
  - ABORTION SPONTANEOUS [None]
